FAERS Safety Report 8818618 (Version 1)
Quarter: 2012Q4

REPORT INFORMATION
  Report Type: 
  Country: GB (occurrence: GB)
  Receive Date: 20121001
  Receipt Date: 20121001
  Transmission Date: 20130627
  Serious: Yes (Disabling)
  Sender: FDA-Public Use
  Company Number: GB-PFIZER INC-2012236056

PATIENT
  Age: 68 Year
  Sex: Female
  Weight: 74.4 kg

DRUGS (2)
  1. EXEMESTANE [Suspect]
     Indication: BREAST CANCER
     Dosage: 25 mg, 1x/day
     Route: 048
     Dates: start: 20120101, end: 20120907
  2. AMLODIPINE [Concomitant]
     Dosage: 10 mg, UNK

REACTIONS (6)
  - Hepatic lesion [Recovering/Resolving]
  - Joint stiffness [Recovering/Resolving]
  - Musculoskeletal stiffness [Recovering/Resolving]
  - Abdominal pain [Recovering/Resolving]
  - Dizziness [Recovering/Resolving]
  - Nausea [Recovering/Resolving]
